FAERS Safety Report 12482449 (Version 1)
Quarter: 2016Q2

REPORT INFORMATION
  Report Type: Spontaneous
  Country: US (occurrence: US)
  Receive Date: 20160620
  Receipt Date: 20160620
  Transmission Date: 20160815
  Serious: Yes (Hospitalization)
  Sender: FDA-Public Use
  Company Number: US-MYLANLABS-2016M1025375

PATIENT

DRUGS (6)
  1. FLUOROURACIL. [Suspect]
     Active Substance: FLUOROURACIL
     Dosage: 1950MG OVER 30 MINUTES ONCE WEEKLY ON WEEKS 1-3 FOLLOWED BY A REST PERIOD OF 1 WEEK
     Route: 040
  2. MULTIVITAMIN                       /00097801/ [Concomitant]
     Active Substance: VITAMINS
     Route: 065
  3. FLUOROURACIL. [Suspect]
     Active Substance: FLUOROURACIL
     Indication: PANCREATIC CARCINOMA METASTATIC
     Dosage: 2750MG OVER 30 MINUTES ONCE WEEKLY ON WEEKS 1-3 FOLLOWED BY A REST PERIOD OF 1 WEEK
     Route: 040
  4. CAPTOPRIL. [Concomitant]
     Active Substance: CAPTOPRIL
     Route: 065
  5. FUROSEMIDE. [Concomitant]
     Active Substance: FUROSEMIDE
     Route: 065
  6. VISTOGARD [Concomitant]
     Active Substance: URIDINE TRIACETATE
     Indication: PANCREATIC CARCINOMA METASTATIC
     Dosage: AT EVERY 8 HOURS FOR 8 DOSES
     Route: 048

REACTIONS (6)
  - Mucosal inflammation [Recovered/Resolved]
  - Platelet count decreased [Unknown]
  - Haemoglobin decreased [Unknown]
  - Exfoliative rash [Recovered/Resolved]
  - Periorbital oedema [Recovered/Resolved]
  - Thrombocytopenia [Recovered/Resolved]
